FAERS Safety Report 5254401-2 (Version None)
Quarter: 2007Q1

REPORT INFORMATION
  Report Type: 
  Country: None (occurrence: None)
  Receive Date: 20070302
  Receipt Date: 20070222
  Transmission Date: 20070707
  Serious: Yes (Other)
  Sender: FDA-Public Use
  Company Number: US-ROCHE-471480

PATIENT
  Age: 10 Year
  Sex: Male
  Weight: 49.9 kg

DRUGS (1)
  1. TAMIFLU [Suspect]
     Indication: INFLUENZA
     Route: 048
     Dates: start: 20060215, end: 20060215

REACTIONS (2)
  - DELIRIUM [None]
  - SCREAMING [None]
